FAERS Safety Report 25384937 (Version 1)
Quarter: 2025Q2

REPORT INFORMATION
  Report Type: Spontaneous
  Country: FR (occurrence: FR)
  Receive Date: 20250602
  Receipt Date: 20250602
  Transmission Date: 20250716
  Serious: Yes (Other)
  Sender: TEVA
  Company Number: None

PATIENT
  Age: 69 Year

DRUGS (2)
  1. ACTIQ [Suspect]
     Active Substance: FENTANYL CITRATE
     Indication: Product used for unknown indication
     Route: 002
     Dates: start: 2010
  2. MORPHINE [Suspect]
     Active Substance: MORPHINE
     Indication: Product used for unknown indication
     Route: 037

REACTIONS (2)
  - Drug dependence [Recovering/Resolving]
  - Drug withdrawal maintenance therapy [Unknown]

NARRATIVE: CASE EVENT DATE: 20090101
